FAERS Safety Report 9579850 (Version 1)
Quarter: 2013Q4

REPORT INFORMATION
  Report Type: Report from Study
  Country: US (occurrence: US)
  Receive Date: 20131002
  Receipt Date: 20131002
  Transmission Date: 20140711
  Serious: Yes (Hospitalization)
  Sender: FDA-Public Use
  Company Number: US-ROCHE-1280698

PATIENT
  Age: 27 Year
  Sex: Male

DRUGS (8)
  1. MYCOPHENOLATE MOFETIL [Suspect]
     Indication: RENAL TRANSPLANT
     Route: 065
     Dates: start: 20130715
  2. TACROLIMUS [Suspect]
     Indication: RENAL TRANSPLANT
     Route: 048
     Dates: start: 20130716, end: 20130818
  3. ANTITHYMOCYTE GLOBULIN [Suspect]
     Indication: RENAL TRANSPLANT
     Route: 042
     Dates: start: 20130716
  4. TOPROL XL [Concomitant]
  5. VALCYTE [Concomitant]
     Route: 065
     Dates: start: 20130715
  6. BACTRIM [Concomitant]
     Route: 065
  7. NYSTATIN [Concomitant]
     Route: 065
     Dates: start: 20130715
  8. LISINOPRIL [Concomitant]
     Route: 065
     Dates: start: 20130328

REACTIONS (5)
  - Chest pain [Unknown]
  - Pyrexia [Unknown]
  - Tachycardia [Unknown]
  - Oxygen saturation decreased [Unknown]
  - Gastritis [Unknown]
